FAERS Safety Report 9845122 (Version 1)
Quarter: 2014Q1

REPORT INFORMATION
  Report Type: Spontaneous
  Country: US (occurrence: None)
  Receive Date: 20140123
  Receipt Date: 20140123
  Transmission Date: 20141002
  Serious: Yes (Life-Threatening, Hospitalization)
  Sender: FDA-Public Use
  Company Number: None

PATIENT
  Age: 28 Year
  Sex: Female
  Weight: 99.79 kg

DRUGS (1)
  1. ORTHO TRI-CYCLEN LO [Suspect]

REACTIONS (1)
  - Pulmonary embolism [None]
